FAERS Safety Report 25442783 (Version 2)
Quarter: 2025Q3

REPORT INFORMATION
  Report Type: Spontaneous
  Country: US (occurrence: US)
  Receive Date: 20250617
  Receipt Date: 20250811
  Transmission Date: 20251021
  Serious: Yes (Other)
  Sender: NOVO NORDISK
  Company Number: US-NOVOPROD-1391818

PATIENT
  Age: 69 Year
  Sex: Female

DRUGS (3)
  1. WEGOVY [Suspect]
     Active Substance: SEMAGLUTIDE
     Indication: Cardiac disorder
     Dosage: 0.25 MG, QW
     Route: 058
     Dates: start: 20250305
  2. WEGOVY [Suspect]
     Active Substance: SEMAGLUTIDE
     Indication: Sleep apnoea syndrome
     Dosage: 0.25 MG, QW
     Route: 058
     Dates: end: 202506
  3. WEGOVY [Suspect]
     Active Substance: SEMAGLUTIDE
     Indication: Weight control
     Dosage: 0.25 MG, QW
     Route: 058
     Dates: start: 20250326, end: 20250526

REACTIONS (9)
  - Bunion operation [Not Recovered/Not Resolved]
  - Toe operation [Not Recovered/Not Resolved]
  - Decreased appetite [Recovered/Resolved]
  - Peripheral swelling [Not Recovered/Not Resolved]
  - Constipation [Recovered/Resolved]
  - Injection site indentation [Recovered/Resolved]
  - Weight loss poor [Recovered/Resolved]
  - Drug ineffective [Recovered/Resolved]
  - Drug dose titration not performed [Unknown]

NARRATIVE: CASE EVENT DATE: 20250301
